FAERS Safety Report 19603820 (Version 1)
Quarter: 2021Q3

REPORT INFORMATION
  Report Type: Spontaneous
  Country: US (occurrence: US)
  Receive Date: 20210723
  Receipt Date: 20210723
  Transmission Date: 20211014
  Serious: Yes (Other)
  Sender: FDA-Public Use
  Company Number: US-SA-2021SA240560

PATIENT
  Age: 81 Year
  Sex: Female

DRUGS (4)
  1. APIXABAN [Suspect]
     Active Substance: APIXABAN
     Indication: TRANSIENT ISCHAEMIC ATTACK
     Dosage: UNK
  2. MYLANTA [RANITIDINE HYDROCHLORIDE] [Concomitant]
     Active Substance: RANITIDINE HYDROCHLORIDE
     Indication: ABDOMINAL PAIN UPPER
     Dosage: UNK
  3. PLAVIX [Suspect]
     Active Substance: CLOPIDOGREL BISULFATE
     Indication: TRANSIENT ISCHAEMIC ATTACK
     Dosage: UNK
     Route: 065
  4. BENTEL [Concomitant]
     Indication: ABDOMINAL PAIN UPPER
     Dosage: UNK

REACTIONS (13)
  - Constipation [Unknown]
  - Inappropriate schedule of product administration [Unknown]
  - Feeling abnormal [Recovering/Resolving]
  - Pain [Unknown]
  - Swelling [Unknown]
  - Abdominal pain upper [Recovered/Resolved]
  - Dry skin [Unknown]
  - Condition aggravated [Unknown]
  - Nail discolouration [Unknown]
  - Lip swelling [Unknown]
  - Nerve injury [Unknown]
  - Off label use [Unknown]
  - Unevaluable event [Unknown]
